FAERS Safety Report 4447093-3 (Version None)
Quarter: 2004Q3

REPORT INFORMATION
  Report Type: 
  Country: None (occurrence: None)
  Receive Date: 20040813
  Receipt Date: 20040525
  Transmission Date: 20050211
  Serious: No
  Sender: FDA-Public Use
  Company Number: S04-USA-03596-01

PATIENT
  Age: 74 Year
  Sex: Female

DRUGS (16)
  1. NAMENDA [Suspect]
     Indication: NEUROPATHY PERIPHERAL
     Dosage: 20 MG BID PO
     Route: 048
     Dates: start: 20040515, end: 20040518
  2. NAMENDA [Suspect]
     Indication: NEUROPATHY PERIPHERAL
     Dosage: 10 MG QAM PO
     Route: 048
     Dates: start: 20040519
  3. NAMENDA [Suspect]
     Indication: NEUROPATHY PERIPHERAL
     Dosage: 15 MG QHS PO
     Route: 048
     Dates: start: 20040519
  4. NAMENDA [Suspect]
     Indication: NEUROPATHY PERIPHERAL
     Dosage: 5 MG QD PO
     Route: 048
     Dates: start: 20040401, end: 20040101
  5. NAMENDA [Suspect]
     Indication: NEUROPATHY PERIPHERAL
     Dosage: 10 MG QD PO
     Route: 048
     Dates: start: 20040101, end: 20040101
  6. NAMENDA [Suspect]
     Indication: NEUROPATHY PERIPHERAL
     Dosage: 15 MG QD PO
     Route: 048
     Dates: start: 20040101, end: 20040101
  7. NAMENDA [Suspect]
     Indication: NEUROPATHY PERIPHERAL
     Dosage: 10 MG BID PO
     Route: 048
     Dates: start: 20040101, end: 20040514
  8. NEURONTIN [Concomitant]
  9. NEXIUM [Concomitant]
  10. ZOCOR [Concomitant]
  11. FOSAMAX [Concomitant]
  12. CALCIUM [Concomitant]
  13. MAGNESIUM [Concomitant]
  14. MULTIVITAMIN [Concomitant]
  15. ASPIRIN [Concomitant]
  16. OMEGA 3 (FISH OIL) [Concomitant]

REACTIONS (1)
  - FEELING ABNORMAL [None]
